FAERS Safety Report 5955754-X (Version None)
Quarter: 2008Q4

REPORT INFORMATION
  Report Type: 
  Country: None (occurrence: None)
  Receive Date: 20081117
  Receipt Date: 20081110
  Transmission Date: 20090506
  Serious: No
  Sender: FDA-Public Use
  Company Number: US-B.I. PHARMACEUTICALS,INC./RIDGEFIELD-2008-BP-17018BP

PATIENT

DRUGS (3)
  1. MOBIC [Suspect]
  2. ARTHROTEC [Suspect]
     Indication: RHEUMATOID ARTHRITIS
  3. CELEBREX [Suspect]

REACTIONS (1)
  - ABDOMINAL DISCOMFORT [None]
